FAERS Safety Report 15092977 (Version 2)
Quarter: 2018Q3

REPORT INFORMATION
  Report Type: Spontaneous
  Country: IN (occurrence: IN)
  Receive Date: 20180629
  Receipt Date: 20180706
  Transmission Date: 20181010
  Serious: Yes (Hospitalization)
  Sender: FDA-Public Use
  Company Number: IN-PFIZER INC-2018262511

PATIENT
  Age: 45 Year
  Sex: Female

DRUGS (3)
  1. FLUOROURACIL 5 FU [Suspect]
     Active Substance: FLUOROURACIL
     Indication: BREAST CANCER STAGE IV
     Dosage: 500 MG/M2, CYCLIC
  2. CYCLOPHOSPHAMIDE. [Suspect]
     Active Substance: CYCLOPHOSPHAMIDE
     Indication: BREAST CANCER STAGE IV
     Dosage: 500 MG/M2, CYCLIC
  3. ADRIAMYCIN [Suspect]
     Active Substance: DOXORUBICIN HYDROCHLORIDE
     Indication: BREAST CANCER STAGE IV
     Dosage: 50 MG/M2, CYCLIC

REACTIONS (5)
  - Gastrointestinal necrosis [Recovered/Resolved]
  - Neutropenia [Recovering/Resolving]
  - Intestinal infarction [Recovered/Resolved]
  - Bronchopulmonary aspergillosis [Recovered/Resolved]
  - Aspergillus infection [Recovered/Resolved]
